FAERS Safety Report 8586588-8 (Version None)
Quarter: 2012Q3

REPORT INFORMATION
  Report Type: 
  Country: None (occurrence: None)
  Receive Date: 20120810
  Receipt Date: 20120802
  Transmission Date: 20120928
  Serious: Yes (Life-Threatening, Hospitalization)
  Sender: FDA-Public Use
  Company Number: GB-JNJFOC-20120211772

PATIENT
  Age: 74 Year
  Sex: Female
  Weight: 63 kg

DRUGS (9)
  1. XARELTO [Suspect]
     Indication: THROMBOSIS PROPHYLAXIS
     Route: 065
     Dates: start: 20111220, end: 20111222
  2. FYBOGEL [Concomitant]
  3. ASPIRIN [Concomitant]
  4. ADALAT CC [Concomitant]
     Indication: HYPERTENSION
     Route: 048
  5. ALENDRONATE SODIUM [Concomitant]
     Indication: OSTEOPOROSIS
  6. SIMVASTATIN [Concomitant]
     Route: 048
  7. LISINOPRIL [Concomitant]
  8. BENDROFLUMETHIAZIDE [Concomitant]
     Indication: HYPERTENSION
  9. CALCICHEW D3 [Concomitant]
     Indication: OSTEOPOROSIS
     Route: 048

REACTIONS (1)
  - PULMONARY EMBOLISM [None]
